FAERS Safety Report 4715847-1 (Version None)
Quarter: 2005Q3

REPORT INFORMATION
  Report Type: 
  Country: None (occurrence: None)
  Receive Date: 20050718
  Receipt Date: 20041008
  Transmission Date: 20060218
  Serious: Yes (Death)
  Sender: FDA-Public Use
  Company Number: JP-ROCHE-383274

PATIENT
  Age: 27 Year
  Sex: Male
  Weight: 65 kg

DRUGS (4)
  1. CELLCEPT [Suspect]
     Route: 048
     Dates: start: 20030307, end: 20030717
  2. PROGRAF [Suspect]
     Route: 048
     Dates: start: 20030307, end: 20030723
  3. SIMULECT [Suspect]
     Route: 042
     Dates: start: 20030313, end: 20030316
  4. PREDONINE [Suspect]
     Route: 048
     Dates: start: 20030307

REACTIONS (1)
  - LYMPHOPROLIFERATIVE DISORDER [None]
